FAERS Safety Report 8080298-1 (Version None)
Quarter: 2012Q1

REPORT INFORMATION
  Report Type: 
  Country: None (occurrence: None)
  Receive Date: 20120130
  Receipt Date: 20120124
  Transmission Date: 20120608
  Serious: Yes (Hospitalization)
  Sender: FDA-Public Use
  Company Number: NL-JNJFOC-20120110394

PATIENT
  Sex: Female
  Weight: 64 kg

DRUGS (45)
  1. RITUXIMAB [Suspect]
     Route: 042
  2. RITUXIMAB [Suspect]
     Route: 042
  3. RITUXIMAB [Suspect]
     Route: 042
  4. CYCLOPHOSPHAMIDE [Suspect]
     Route: 042
  5. CYCLOPHOSPHAMIDE [Suspect]
     Route: 042
  6. NEUPOGEN [Suspect]
     Indication: DIFFUSE LARGE B-CELL LYMPHOMA
     Route: 058
  7. NEUPOGEN [Suspect]
     Route: 058
  8. NEUPOGEN [Suspect]
     Route: 058
  9. DOXORUBICIN HCL [Suspect]
     Indication: DIFFUSE LARGE B-CELL LYMPHOMA
     Route: 042
  10. DOXORUBICIN HCL [Suspect]
     Route: 042
  11. CYCLOPHOSPHAMIDE [Suspect]
     Route: 042
  12. DIOVAN [Concomitant]
     Route: 065
     Dates: start: 20101124, end: 20110127
  13. RITUXIMAB [Suspect]
     Dosage: CYCLE 7
     Route: 042
     Dates: start: 20110119, end: 20110119
  14. PREDNISONE TAB [Suspect]
     Route: 042
  15. VINCRISTINE [Suspect]
     Indication: DIFFUSE LARGE B-CELL LYMPHOMA
     Route: 042
  16. AMLODIPINE [Concomitant]
     Route: 065
     Dates: start: 20101124, end: 20110127
  17. CYCLOPHOSPHAMIDE [Suspect]
     Dosage: CYCLE 7
     Route: 042
     Dates: start: 20110119, end: 20110119
  18. VINCRISTINE [Suspect]
     Route: 042
  19. VINCRISTINE [Suspect]
     Dosage: CYCLE 7
     Route: 042
     Dates: start: 20110119, end: 20110119
  20. DOXORUBICIN HCL [Suspect]
     Route: 042
  21. RITUXIMAB [Suspect]
     Route: 042
  22. PREDNISONE TAB [Suspect]
     Route: 042
  23. VINCRISTINE [Suspect]
     Route: 042
  24. VINCRISTINE [Suspect]
     Route: 042
  25. VINCRISTINE [Suspect]
     Route: 042
  26. NEUPOGEN [Suspect]
     Route: 058
  27. VALACYCLOVIR HYDROCHLORIDE [Concomitant]
     Route: 065
     Dates: start: 20101124, end: 20110127
  28. DOXORUBICIN HCL [Suspect]
     Route: 042
     Dates: start: 20110119, end: 20110119
  29. PREDNISONE TAB [Suspect]
     Indication: DIFFUSE LARGE B-CELL LYMPHOMA
     Dosage: CYCLE 7
     Route: 042
     Dates: start: 20110119, end: 20110119
  30. PREDNISONE TAB [Suspect]
     Route: 042
  31. CYCLOPHOSPHAMIDE [Suspect]
     Indication: DIFFUSE LARGE B-CELL LYMPHOMA
     Route: 042
  32. CYCLOPHOSPHAMIDE [Suspect]
     Route: 042
  33. VINCRISTINE [Suspect]
     Route: 042
  34. DOXORUBICIN HCL [Suspect]
     Route: 042
  35. DOXORUBICIN HCL [Suspect]
     Route: 042
  36. PREDNISONE TAB [Suspect]
     Route: 042
  37. NEUPOGEN [Suspect]
     Dosage: CYCLE 7
     Route: 058
     Dates: start: 20110120, end: 20110120
  38. DOXORUBICIN HCL [Suspect]
     Route: 042
  39. RITUXIMAB [Suspect]
     Indication: DIFFUSE LARGE B-CELL LYMPHOMA
     Route: 042
  40. RITUXIMAB [Suspect]
     Route: 042
  41. PREDNISONE TAB [Suspect]
     Route: 042
  42. PREDNISONE TAB [Suspect]
     Route: 042
  43. CYCLOPHOSPHAMIDE [Suspect]
     Route: 042
  44. NEUPOGEN [Suspect]
     Route: 058
  45. NEUPOGEN [Suspect]
     Route: 058

REACTIONS (1)
  - URINARY BLADDER HAEMORRHAGE [None]
